FAERS Safety Report 6834942-4 (Version None)
Quarter: 2010Q3

REPORT INFORMATION
  Report Type: 
  Country: None (occurrence: None)
  Receive Date: 20100712
  Receipt Date: 20070423
  Transmission Date: 20110219
  Serious: No
  Sender: FDA-Public Use
  Company Number: US-PFIZER INC-2007034128

PATIENT
  Sex: Female
  Weight: 238.14 kg

DRUGS (7)
  1. CHANTIX [Suspect]
     Indication: SMOKING CESSATION THERAPY
     Dates: start: 20070415
  2. PSEUDOEPHEDRINE HYDROCHLORIDE [Suspect]
     Indication: MULTIPLE ALLERGIES
  3. CYMBALTA [Concomitant]
  4. PROTONIX [Concomitant]
  5. MULTI-VITAMINS [Concomitant]
  6. SALMON OIL [Concomitant]
  7. NICOTINE [Concomitant]
     Indication: SMOKING CESSATION THERAPY

REACTIONS (8)
  - ABDOMINAL DISCOMFORT [None]
  - DYSGEUSIA [None]
  - FATIGUE [None]
  - HEADACHE [None]
  - MALAISE [None]
  - NAUSEA [None]
  - SENSATION OF HEAVINESS [None]
  - VOMITING [None]
